FAERS Safety Report 6880718 (Version 7)
Quarter: 2013Q4

REPORT INFORMATION
  Report Type: Spontaneous
  Country: US (occurrence: US)
  Receive Date: 20060322
  Receipt Date: 20131018
  Transmission Date: 20140711
  Serious: Yes (Hospitalization)
  Sender: FDA-Public Use
  Company Number: US-BIOGENIDEC-2006BI004006

PATIENT
  Age: 68 Year
  Sex: Female
  Weight: 72 kg

DRUGS (6)
  1. AVONEX [Suspect]
     Indication: MULTIPLE SCLEROSIS
     Route: 030
     Dates: start: 19960528, end: 200506
  2. AVONEX [Suspect]
     Indication: MULTIPLE SCLEROSIS
     Route: 030
     Dates: start: 200506
  3. AVONEX [Suspect]
     Indication: MULTIPLE SCLEROSIS
     Route: 030
     Dates: start: 200602, end: 200603
  4. AVONEX [Suspect]
     Indication: MULTIPLE SCLEROSIS
     Route: 030
     Dates: end: 201110
  5. AVONEX [Suspect]
     Indication: MULTIPLE SCLEROSIS
     Route: 030
     Dates: end: 20120802
  6. AVONEX [Suspect]
     Indication: MULTIPLE SCLEROSIS
     Route: 030
     Dates: start: 20120809

REACTIONS (18)
  - B-cell lymphoma [Not Recovered/Not Resolved]
  - Thrombosis [Recovered/Resolved]
  - Optic neuritis [Unknown]
  - Mobility decreased [Unknown]
  - Lymphocyte count decreased [Not Recovered/Not Resolved]
  - Urinary retention [Recovered/Resolved]
  - VIIth nerve paralysis [Recovered/Resolved]
  - Body height decreased [Not Recovered/Not Resolved]
  - Mass [Not Recovered/Not Resolved]
  - Back pain [Recovered/Resolved]
  - Gait disturbance [Recovered/Resolved]
  - Muscle disorder [Recovered/Resolved]
  - Feeling of body temperature change [Recovered/Resolved]
  - Nocturia [Recovered/Resolved]
  - Local swelling [Not Recovered/Not Resolved]
  - Fatigue [Recovered/Resolved]
  - Muscle spasms [Recovered/Resolved]
  - Feeling abnormal [Recovered/Resolved]
